FAERS Safety Report 12411674 (Version 1)
Quarter: 2016Q2

REPORT INFORMATION
  Report Type: Spontaneous
  Country: US (occurrence: None)
  Receive Date: 20160526
  Receipt Date: 20160526
  Transmission Date: 20160815
  Serious: Yes (Hospitalization)
  Sender: FDA-Public Use
  Company Number: None

PATIENT
  Age: 74 Year
  Sex: Male
  Weight: 78.9 kg

DRUGS (1)
  1. VOTRIENT [Suspect]
     Active Substance: PAZOPANIB HYDROCHLORIDE
     Indication: METASTATIC RENAL CELL CARCINOMA
     Dosage: 600MG INITIALLY, TITRATED TO 800MG
     Route: 048
     Dates: start: 20151029, end: 20151116

REACTIONS (9)
  - Pain in extremity [None]
  - Fall [None]
  - Diarrhoea [None]
  - Asthenia [None]
  - Acute kidney injury [None]
  - Weight decreased [None]
  - Gait disturbance [None]
  - Pallor [None]
  - Rhabdomyolysis [None]

NARRATIVE: CASE EVENT DATE: 20151116
